FAERS Safety Report 12784376 (Version 1)
Quarter: 2016Q3

REPORT INFORMATION
  Report Type: Spontaneous
  Country: JP (occurrence: JP)
  Receive Date: 20160927
  Receipt Date: 20160927
  Transmission Date: 20161109
  Serious: Yes (Other)
  Sender: FDA-Public Use
  Company Number: JP-BEH-2010026781

PATIENT
  Age: 16 Year
  Sex: Male
  Weight: 49.1 kg

DRUGS (6)
  1. FRESH FROZEN PLASMA [Concomitant]
     Active Substance: HUMAN PLASMA
     Dates: start: 20100927, end: 20100927
  2. PLATELETS [Concomitant]
     Active Substance: HUMAN PLATELET, ALLOGENIC
     Dates: start: 20100926, end: 20100926
  3. PLATELETS [Concomitant]
     Active Substance: HUMAN PLATELET, ALLOGENIC
     Dates: start: 20100928, end: 20100928
  4. PACKED RED BLOOD CELLS [Concomitant]
     Active Substance: HUMAN RED BLOOD CELL
     Dates: start: 20100929, end: 20100929
  5. SANGLOPOR [Suspect]
     Active Substance: HUMAN IMMUNOGLOBULIN G
     Indication: STEM CELL TRANSPLANT
     Dosage: 2.5G X 4 VIALS (PER DAY); INFUSION RATE: 25ML/H
     Route: 042
     Dates: start: 20100929, end: 20100930
  6. PACKED RED BLOOD CELLS [Concomitant]
     Active Substance: HUMAN RED BLOOD CELL
     Dates: start: 20100925, end: 20100925

REACTIONS (2)
  - Adverse reaction [Recovered/Resolved]
  - Haemolytic anaemia [Recovered/Resolved]

NARRATIVE: CASE EVENT DATE: 20100929
